FAERS Safety Report 5195771-3 (Version None)
Quarter: 2006Q4

REPORT INFORMATION
  Report Type: 
  Country: None (occurrence: None)
  Receive Date: 20061227
  Receipt Date: 20061220
  Transmission Date: 20070319
  Serious: Yes (Hospitalization)
  Sender: FDA-Public Use
  Company Number: 2006PV023521

PATIENT
  Age: 50 Year
  Sex: Female

DRUGS (20)
  1. BYETTA [Suspect]
     Indication: DIABETES MELLITUS NON-INSULIN-DEPENDENT
     Dosage: SEE IMAGE, SC
     Route: 058
     Dates: start: 20050715, end: 20050101
  2. BYETTA [Suspect]
     Indication: DIABETES MELLITUS NON-INSULIN-DEPENDENT
     Dosage: SEE IMAGE, SC
     Route: 058
     Dates: start: 20050101
  3. ASPIRIN [Concomitant]
  4. POTASSIUM ACETATE [Concomitant]
  5. GLIPIZIDE [Concomitant]
  6. BUMETANIDE [Concomitant]
  7. MAXAIR [Concomitant]
  8. PREVACID [Concomitant]
  9. FORADIL [Concomitant]
  10. COUMADIN [Concomitant]
  11. BETAPACE [Concomitant]
  12. SYNTHROID [Concomitant]
  13. XOPENEX [Concomitant]
  14. STOOL SOFTNER [Concomitant]
  15. FIBER [Concomitant]
  16. FISH OIL [Concomitant]
  17. FLAX SEED OIL [Concomitant]
  18. IBUPROFEN [Concomitant]
  19. DIGOXIN [Concomitant]
  20. NIASPAN [Concomitant]

REACTIONS (11)
  - BILIARY TRACT INFECTION [None]
  - CHOLECYSTITIS ACUTE [None]
  - CHOLELITHIASIS [None]
  - CLOSTRIDIAL INFECTION [None]
  - DIARRHOEA [None]
  - GASTRIC POLYPS [None]
  - GASTRITIS [None]
  - INFECTION [None]
  - PREDISPOSITION TO DISEASE [None]
  - PULMONARY EMBOLISM [None]
  - WEIGHT DECREASED [None]
